FAERS Safety Report 24060604 (Version 1)
Quarter: 2024Q3

REPORT INFORMATION
  Report Type: Spontaneous
  Country: CN (occurrence: CN)
  Receive Date: 20240708
  Receipt Date: 20240708
  Transmission Date: 20241016
  Serious: Yes (Other)
  Sender: BRACCO
  Company Number: CN-BRACCO-2024CN03945

PATIENT
  Age: 31 Year
  Sex: Female

DRUGS (4)
  1. SULPHUR HEXAFLUORIDE [Suspect]
     Active Substance: SULFUR HEXAFLUORIDE
     Indication: Ultrasound Doppler
     Dosage: 29.5 MG, SINGLE
     Route: 015
     Dates: start: 20240514, end: 20240514
  2. SULPHUR HEXAFLUORIDE [Suspect]
     Active Substance: SULFUR HEXAFLUORIDE
     Indication: Ultrasound Doppler
     Dosage: 29.5 MG, SINGLE
     Route: 015
     Dates: start: 20240514, end: 20240514
  3. SULPHUR HEXAFLUORIDE [Suspect]
     Active Substance: SULFUR HEXAFLUORIDE
     Indication: Ultrasound Doppler
     Dosage: 29.5 MG, SINGLE
     Route: 015
     Dates: start: 20240514, end: 20240514
  4. SODIUM CHLORIDE [Concomitant]
     Active Substance: SODIUM CHLORIDE
     Dosage: 20 ML, SINGLE
     Route: 015
     Dates: start: 20240514, end: 20240514

REACTIONS (1)
  - Pain [Recovering/Resolving]

NARRATIVE: CASE EVENT DATE: 20240514
